FAERS Safety Report 9038573 (Version 2)
Quarter: 2013Q1

REPORT INFORMATION
  Report Type: Spontaneous
  Country: US (occurrence: US)
  Receive Date: 20130129
  Receipt Date: 20130305
  Transmission Date: 20140127
  Serious: Yes (Other)
  Sender: FDA-Public Use
  Company Number: US-FRI-1000042214

PATIENT
  Age: 36 Year
  Sex: Female

DRUGS (5)
  1. VIIBRYD [Suspect]
     Indication: MAJOR DEPRESSION
     Dosage: 10 MG
     Route: 048
     Dates: start: 201211, end: 2012
  2. VIIBRYD [Suspect]
     Dosage: 20 MG
     Route: 048
     Dates: start: 2012, end: 2012
  3. VIIBRYD [Suspect]
     Indication: MAJOR DEPRESSION
     Dosage: 40 MG
     Route: 048
     Dates: start: 2012, end: 201302
  4. VIIBRYD [Suspect]
     Dosage: 20 MG
     Route: 048
     Dates: start: 201302
  5. WELLBUTRIN [Concomitant]
     Dosage: 150 MG

REACTIONS (8)
  - Cognitive disorder [Recovering/Resolving]
  - Memory impairment [Recovering/Resolving]
  - Apathy [Recovering/Resolving]
  - Dissociation [Recovering/Resolving]
  - Disturbance in attention [Recovering/Resolving]
  - Somnolence [Recovered/Resolved]
  - Myalgia [Recovering/Resolving]
  - Arthralgia [Recovering/Resolving]
